FAERS Safety Report 14553239 (Version 1)
Quarter: 2018Q1

REPORT INFORMATION
  Report Type: Spontaneous
  Country: US (occurrence: US)
  Receive Date: 20180209
  Receipt Date: 20180209
  Transmission Date: 20180509
  Serious: Yes (Disabling)
  Sender: FDA-Public Use
  Company Number: None

PATIENT
  Age: 39 Year
  Sex: Female
  Weight: 87.3 kg

DRUGS (12)
  1. FERROUS GLUCONATE [Concomitant]
     Active Substance: FERROUS GLUCONATE
  2. BERBERINE [Concomitant]
     Active Substance: BERBERINE
  3. SPEARMINT. [Concomitant]
     Active Substance: SPEARMINT
  4. BENFOTIAMINE [Concomitant]
     Active Substance: BENFOTIAMINE
  5. IODINE CONTRAST [Suspect]
     Active Substance: IODINE
     Indication: SCAN WITH CONTRAST
     Dosage: ?          OTHER STRENGTH:UNKNOWN;QUANTITY:1 INJECTIOM FOR CT;?
     Route: 042
     Dates: start: 20180202, end: 20180202
  6. PROGESTERONE. [Concomitant]
     Active Substance: PROGESTERONE
  7. GARLIC EXTRACT [Concomitant]
     Active Substance: GARLIC
  8. MAGNESIUM [Concomitant]
     Active Substance: MAGNESIUM
  9. MULTIVITAMIN [Concomitant]
     Active Substance: VITAMINS
  10. CALCIUM [Concomitant]
     Active Substance: CALCIUM
  11. VITAMIN D [Concomitant]
     Active Substance: CHOLECALCIFEROL
  12. PROBIOTIC PHILIPS COLIN HEALTH [Concomitant]

REACTIONS (5)
  - Presyncope [None]
  - Migraine [None]
  - Head discomfort [None]
  - Muscular weakness [None]
  - Tinnitus [None]

NARRATIVE: CASE EVENT DATE: 20180202
